FAERS Safety Report 4569711-1 (Version None)
Quarter: 2005Q1

REPORT INFORMATION
  Report Type: 
  Country: None (occurrence: None)
  Receive Date: 20050201
  Receipt Date: 20050118
  Transmission Date: 20050727
  Serious: Yes (Hospitalization)
  Sender: FDA-Public Use
  Company Number: 2004122101

PATIENT
  Age: 85 Year
  Sex: Male

DRUGS (5)
  1. CELEBREX [Suspect]
     Indication: OSTEOARTHRITIS
     Dosage: 200 MG (100 MG, 2 IN 1 D), ORAL
     Route: 048
     Dates: start: 20010101
  2. RAMIPRIL [Suspect]
     Indication: HYPERTENSION
     Dosage: ORAL
     Route: 048
  3. CLOPIDOGREL BISULFATE [Concomitant]
  4. DRUG, UNSPECIFIED (DRUG, UNSPECIFIED) [Concomitant]
  5. SIMVASTATIN [Concomitant]

REACTIONS (5)
  - ABDOMINAL PAIN UPPER [None]
  - FALL [None]
  - HYPOTENSION [None]
  - LACERATION [None]
  - PRURITUS [None]
